FAERS Safety Report 9539093 (Version 1)
Quarter: 2013Q3

REPORT INFORMATION
  Report Type: Spontaneous
  Country: DK (occurrence: FR)
  Receive Date: 20130920
  Receipt Date: 20130920
  Transmission Date: 20140515
  Serious: Yes (Hospitalization)
  Sender: FDA-Public Use
  Company Number: FR-FRI-1000048937

PATIENT
  Age: 45 Year
  Sex: Female

DRUGS (3)
  1. ESCITALOPRAM [Suspect]
     Indication: DEPRESSION
     Dosage: 1 DF
     Route: 048
     Dates: start: 20130613, end: 20130617
  2. CARBOPLATINE [Concomitant]
  3. ETOPOSIDE [Concomitant]

REACTIONS (1)
  - Pancytopenia [Recovered/Resolved]
